FAERS Safety Report 16405069 (Version 1)
Quarter: 2019Q2

REPORT INFORMATION
  Report Type: Spontaneous
  Country: GB (occurrence: GB)
  Receive Date: 20190607
  Receipt Date: 20190607
  Transmission Date: 20190711
  Serious: Yes (Hospitalization, Other)
  Sender: FDA-Public Use
  Company Number: GB-ASTRAZENECA-2019SE83043

PATIENT
  Age: 74 Year
  Sex: Male
  Weight: 84.4 kg

DRUGS (6)
  1. DUTASTERIDE. [Concomitant]
     Active Substance: DUTASTERIDE
  2. DAXAS [Suspect]
     Active Substance: ROFLUMILAST
     Dosage: 1 DF EVERY OTHER DAY FOR 2 WEEKS THEN ONE TAB DAILY
     Route: 048
     Dates: start: 20190330, end: 20190417
  3. STERINEB SALINE [Concomitant]
  4. CARBOCISTEINE [Concomitant]
     Active Substance: CARBOCYSTEINE
  5. SERETIDE [Concomitant]
     Active Substance: FLUTICASONE PROPIONATE\SALMETEROL XINAFOATE
  6. VENTOLIN [Concomitant]
     Active Substance: ALBUTEROL SULFATE

REACTIONS (9)
  - Abnormal loss of weight [Recovering/Resolving]
  - Muscle spasms [Recovering/Resolving]
  - Insomnia [Recovering/Resolving]
  - Decreased appetite [Recovering/Resolving]
  - Tremor [Recovering/Resolving]
  - Swelling of eyelid [Recovering/Resolving]
  - Dyspnoea [Recovering/Resolving]
  - Heart rate increased [Not Recovered/Not Resolved]
  - Hypertension [Not Recovered/Not Resolved]

NARRATIVE: CASE EVENT DATE: 20190401
